FAERS Safety Report 10213407 (Version 2)
Quarter: 2014Q2

REPORT INFORMATION
  Report Type: Spontaneous
  Country: US (occurrence: US)
  Receive Date: 20140603
  Receipt Date: 20140619
  Transmission Date: 20141212
  Serious: Yes (Hospitalization)
  Sender: FDA-Public Use
  Company Number: US-009507513-1405USA015595

PATIENT
  Sex: Male

DRUGS (1)
  1. DULERA [Suspect]
     Route: 055

REACTIONS (3)
  - Dyspnoea [Recovered/Resolved]
  - Asthma [Recovered/Resolved]
  - Dysphonia [Recovered/Resolved]
